FAERS Safety Report 11018388 (Version 2)
Quarter: 2015Q2

REPORT INFORMATION
  Report Type: Spontaneous
  Country: US (occurrence: US)
  Receive Date: 20150412
  Receipt Date: 20150524
  Transmission Date: 20150821
  Serious: Yes (Other)
  Sender: FDA-Public Use
  Company Number: US-JNJFOC-20130318923

PATIENT
  Sex: Female

DRUGS (2)
  1. LIPODOX [Suspect]
     Active Substance: DOXORUBICIN HYDROCHLORIDE
     Indication: BREAST CANCER METASTATIC
     Route: 042
  2. DOXIL [Suspect]
     Active Substance: DOXORUBICIN HYDROCHLORIDE
     Indication: BREAST CANCER METASTATIC
     Route: 042
     Dates: start: 2012, end: 201211

REACTIONS (2)
  - Mucosal inflammation [Unknown]
  - Neutropenia [Unknown]

NARRATIVE: CASE EVENT DATE: 201211
